FAERS Safety Report 18657633 (Version 3)
Quarter: 2021Q1

REPORT INFORMATION
  Report Type: Spontaneous
  Country: JP (occurrence: JP)
  Receive Date: 20201223
  Receipt Date: 20210322
  Transmission Date: 20210419
  Serious: Yes (Other)
  Sender: FDA-Public Use
  Company Number: JP-JNJFOC-20201240863

PATIENT
  Sex: Female

DRUGS (1)
  1. HUMAN THROMBIN [Suspect]
     Active Substance: THROMBIN HUMAN
     Indication: SURGERY
     Route: 065
     Dates: start: 20201130, end: 20201130

REACTIONS (2)
  - Procedural pain [Recovered/Resolved]
  - Haematoma [Recovered/Resolved]
